FAERS Safety Report 8890257 (Version 2)
Quarter: 2012Q4

REPORT INFORMATION
  Report Type: 
  Country: BR (occurrence: BR)
  Receive Date: 20121107
  Receipt Date: 20121115
  Transmission Date: 20130627
  Serious: Yes (Death, Hospitalization)
  Sender: FDA-Public Use
  Company Number: BR-PFIZER INC-2012277141

PATIENT
  Age: 75 Year
  Sex: Male
  Weight: 55 kg

DRUGS (5)
  1. SUTENT [Suspect]
     Indication: METASTATIC RENAL CARCINOMA
     Dosage: 50 mg, 1x/day in the morning
     Route: 048
     Dates: start: 201209
  2. LOSARTAN [Concomitant]
     Indication: HYPERTENSION
     Dosage: 50 mg, 1x/day
  3. TRAMAL [Concomitant]
  4. MORPHINE [Concomitant]
     Indication: PAIN
     Dosage: 30 mg, every 4 hours
  5. DIPYRONE [Concomitant]

REACTIONS (4)
  - Disease progression [Fatal]
  - Metastatic renal cell carcinoma [Fatal]
  - Multi-organ failure [Fatal]
  - Pneumonia [Unknown]
